FAERS Safety Report 5296821-6 (Version None)
Quarter: 2007Q2

REPORT INFORMATION
  Report Type: 
  Country: None (occurrence: None)
  Receive Date: 20070413
  Receipt Date: 20070404
  Transmission Date: 20071010
  Serious: Yes (Other)
  Sender: FDA-Public Use
  Company Number: US-PFIZER INC-2007027458

PATIENT
  Sex: Female
  Weight: 65.8 kg

DRUGS (6)
  1. ZOLOFT [Suspect]
     Indication: DEPRESSION
     Dates: start: 20060301, end: 20060801
  2. ZOLOFT [Suspect]
     Indication: ANXIETY
  3. EFFEXOR [Suspect]
  4. MONTELUKAST SODIUM [Concomitant]
  5. ALBUTEROL [Concomitant]
  6. PROTONIX [Concomitant]

REACTIONS (6)
  - ABDOMINAL PAIN UPPER [None]
  - ALOPECIA [None]
  - ARRHYTHMIA [None]
  - BIPOLAR DISORDER [None]
  - HEADACHE [None]
  - NERVOUSNESS [None]
